FAERS Safety Report 11881198 (Version 1)
Quarter: 2015Q4

REPORT INFORMATION
  Report Type: Spontaneous
  Country: JP (occurrence: JP)
  Receive Date: 20151231
  Receipt Date: 20151231
  Transmission Date: 20160305
  Serious: Yes (Death)
  Sender: FDA-Public Use
  Company Number: JP-ROCHE-1669108

PATIENT
  Age: 63 Year
  Sex: Male
  Weight: 61 kg

DRUGS (10)
  1. AVASTIN [Suspect]
     Active Substance: BEVACIZUMAB
     Indication: LUNG ADENOCARCINOMA
     Dosage: DOSAGE IS UNCERTAIN. MAINTAINECE THERAPY RECEIVED ON19/DEC/2012 (2ND DOSE), 16/JAN/2013 (3RD DOSE),
     Route: 041
     Dates: start: 20121116
  2. PACLITAXEL. [Concomitant]
     Active Substance: PACLITAXEL
     Dosage: ONCE EVERY 4-6 WEEKS, COMPLETED TREATMENT CYCLE 8; 09/MAR/2012 (2ND DOSE), 06/APR/2012 (3RD DOSE), 1
     Route: 041
     Dates: start: 20120206, end: 20120511
  3. ALOXI [Concomitant]
     Active Substance: PALONOSETRON HYDROCHLORIDE
     Indication: PROPHYLAXIS OF NAUSEA AND VOMITING
     Route: 041
     Dates: start: 20120206, end: 20121010
  4. CARBOPLATIN. [Concomitant]
     Active Substance: CARBOPLATIN
     Indication: LUNG ADENOCARCINOMA
     Dosage: EVERY 4-6 WEEKS, ONCE; 09/MAR/2012 (2ND DOSE), 06/APR/2012 (3RD DOSE), 11/MAY/2012 (4TH DOSE),
     Route: 041
     Dates: start: 20120206
  5. AVASTIN [Suspect]
     Active Substance: BEVACIZUMAB
     Indication: LUNG ADENOCARCINOMA
     Dosage: DOSAGE IS UNCERTAIN. THERAPY RECEIVED ON 09/MAR/2012 (2ND DOSE), 06/APR/2012 (3RD DOSE), 11/MAY/2012
     Route: 041
     Dates: start: 20120206, end: 20121010
  6. VENA [Concomitant]
     Active Substance: DIPHENHYDRAMINE HYDROCHLORIDE
     Indication: PREMEDICATION
     Route: 048
     Dates: start: 20120206, end: 20121010
  7. CARBOPLATIN. [Concomitant]
     Active Substance: CARBOPLATIN
     Dosage: EVERY 4-6 WEEKS, ONCE. COMPLETED TREATMENT CYCLE NUMBER 8; 22/JUN/2012 (5TH DOSE), 20/JUL/2012 (6TH
     Route: 041
     Dates: start: 20120622, end: 20121010
  8. ZANTAC [Concomitant]
     Active Substance: RANITIDINE HYDROCHLORIDE
     Indication: GASTRITIS PROPHYLAXIS
     Route: 041
     Dates: start: 20120206, end: 20121010
  9. PACLITAXEL. [Concomitant]
     Active Substance: PACLITAXEL
     Indication: LUNG ADENOCARCINOMA
     Dosage: ONCE EVERY 4-6 WEEKS
     Route: 041
     Dates: start: 20120206, end: 20120511
  10. DECADRON [Concomitant]
     Active Substance: DEXAMETHASONE
     Indication: PROPHYLAXIS OF NAUSEA AND VOMITING
     Route: 041
     Dates: start: 20120206, end: 20121010

REACTIONS (3)
  - Dysphonia [Not Recovered/Not Resolved]
  - Laryngeal necrosis [Recovering/Resolving]
  - Lung adenocarcinoma [Fatal]

NARRATIVE: CASE EVENT DATE: 201212
